FAERS Safety Report 15276304 (Version 1)
Quarter: 2018Q3

REPORT INFORMATION
  Report Type: Spontaneous
  Country: US (occurrence: US)
  Receive Date: 20180814
  Receipt Date: 20180814
  Transmission Date: 20181010
  Serious: Yes (Hospitalization, Other)
  Sender: FDA-Public Use
  Company Number: US-JNJFOC-20180808654

PATIENT
  Age: 63 Year
  Sex: Male
  Weight: 77.11 kg

DRUGS (4)
  1. XARELTO [Suspect]
     Active Substance: RIVAROXABAN
     Indication: ATRIAL FIBRILLATION
     Dosage: STARTED 4 YEARS AGO
     Route: 048
     Dates: start: 2014, end: 201801
  2. XARELTO [Suspect]
     Active Substance: RIVAROXABAN
     Indication: CEREBROVASCULAR ACCIDENT PROPHYLAXIS
     Dosage: STARTED 4 YEARS AGO
     Route: 048
     Dates: start: 2014, end: 201801
  3. XARELTO [Suspect]
     Active Substance: RIVAROXABAN
     Indication: THROMBOSIS PROPHYLAXIS
     Dosage: STARTED 4 YEARS AGO
     Route: 048
     Dates: start: 2014, end: 201801
  4. DIAMOX SEQUELS [Suspect]
     Active Substance: ACETAZOLAMIDE
     Indication: OCULAR DISCOMFORT
     Route: 048
     Dates: start: 201712, end: 201804

REACTIONS (7)
  - Sepsis [Unknown]
  - Atrial fibrillation [Recovered/Resolved]
  - Cataract [Unknown]
  - Pneumonia [Unknown]
  - Abnormal loss of weight [Not Recovered/Not Resolved]
  - Eye haemorrhage [Unknown]
  - Internal haemorrhage [Unknown]

NARRATIVE: CASE EVENT DATE: 20171219
